FAERS Safety Report 16186366 (Version 1)
Quarter: 2019Q2

REPORT INFORMATION
  Report Type: Spontaneous
  Country: DE (occurrence: DE)
  Receive Date: 20190411
  Receipt Date: 20190411
  Transmission Date: 20190711
  Serious: Yes (Other)
  Sender: FDA-Public Use
  Company Number: DE-MYLANLABS-2019M1033739

PATIENT
  Age: 52 Year
  Sex: Female
  Weight: 70 kg

DRUGS (1)
  1. CANDESARTAN. [Suspect]
     Active Substance: CANDESARTAN
     Indication: HYPERTENSION
     Dosage: 32 MILLIGRAM
     Route: 048
     Dates: start: 20180122, end: 20180222

REACTIONS (12)
  - Fall [Recovering/Resolving]
  - Pain of skin [Recovering/Resolving]
  - Disturbance in attention [Recovering/Resolving]
  - Visual impairment [Recovering/Resolving]
  - Joint swelling [Recovering/Resolving]
  - Immobile [Recovering/Resolving]
  - Anal sphincter atony [Recovering/Resolving]
  - Myalgia [Recovering/Resolving]
  - Weight bearing difficulty [Recovering/Resolving]
  - Aggression [Recovering/Resolving]
  - Movement disorder [Recovering/Resolving]
  - Arthralgia [Recovering/Resolving]

NARRATIVE: CASE EVENT DATE: 20180123
